FAERS Safety Report 8479520-9 (Version None)
Quarter: 2012Q2

REPORT INFORMATION
  Report Type: 
  Country: None (occurrence: None)
  Receive Date: 20120629
  Receipt Date: 20120622
  Transmission Date: 20120825
  Serious: Yes (Hospitalization)
  Sender: FDA-Public Use
  Company Number: US-ACTELION-A-US2011-52096

PATIENT

DRUGS (5)
  1. CALCIUM CHANNEL BLOCKERS [Concomitant]
  2. REVATIO [Concomitant]
  3. TRACLEER [Suspect]
     Indication: PULMONARY ARTERIAL HYPERTENSION
     Dosage: UNK
     Route: 048
     Dates: start: 20100202
  4. AMIODARONE HYDROCHLORIDE [Suspect]
  5. PRADAXA [Concomitant]

REACTIONS (4)
  - DYSPNOEA [None]
  - DYSKINESIA [None]
  - CARDIAC DISORDER [None]
  - ATRIAL FIBRILLATION [None]
